FAERS Safety Report 4683744-6 (Version None)
Quarter: 2005Q2

REPORT INFORMATION
  Report Type: 
  Country: None (occurrence: None)
  Receive Date: 20050602
  Receipt Date: 20050120
  Transmission Date: 20051028
  Serious: No
  Sender: FDA-Public Use
  Company Number: USA050189050

PATIENT
  Age: 48 Year
  Sex: Female

DRUGS (3)
  1. CYMBALTA [Suspect]
     Dosage: 30 MG IN THE MORNING
     Dates: start: 20041201, end: 20050117
  2. DEPAKOTE [Concomitant]
  3. XANAX (ALPRAZOLAM DUM) [Concomitant]

REACTIONS (2)
  - BLOOD PRESSURE INCREASED [None]
  - TREMOR [None]
